FAERS Safety Report 10173903 (Version 1)
Quarter: 2014Q2

REPORT INFORMATION
  Report Type: Spontaneous
  Country: US (occurrence: None)
  Receive Date: 20140513
  Receipt Date: 20140513
  Transmission Date: 20141212
  Serious: Yes (Other)
  Sender: FDA-Public Use
  Company Number: 2014AP002838

PATIENT
  Age: 56 Year
  Sex: Female

DRUGS (3)
  1. HYDROXYCHLOROQUINE (HYDROXYCHLOROQUINE) (HYDROCHLOROQUINE) [Suspect]
     Indication: RHEUMATOID ARTHRITIS
  2. NABUMETONE [Suspect]
  3. IBUPROFEN (IBUPROFEN) [Suspect]

REACTIONS (6)
  - Retinopathy [None]
  - Overdose [None]
  - Drug interaction [None]
  - Toxicity to various agents [None]
  - Maculopathy [None]
  - Impaired driving ability [None]
